FAERS Safety Report 18997954 (Version 1)
Quarter: 2021Q1

REPORT INFORMATION
  Report Type: Report from Study
  Country: ZA (occurrence: ZA)
  Receive Date: 20210311
  Receipt Date: 20210311
  Transmission Date: 20210420
  Serious: Yes (Death)
  Sender: FDA-Public Use
  Company Number: NVSC2021ZA049887

PATIENT
  Age: 46 Year
  Sex: Female
  Weight: 60.1 kg

DRUGS (1)
  1. MIDOSTAURIN [Suspect]
     Active Substance: MIDOSTAURIN
     Indication: PRODUCT USED FOR UNKNOWN INDICATION
     Dosage: 50 MG, BID (D8?21)
     Route: 048
     Dates: start: 20190930, end: 20200318

REACTIONS (3)
  - Death [Fatal]
  - Disease recurrence [Unknown]
  - Treatment failure [Unknown]

NARRATIVE: CASE EVENT DATE: 20200303
